FAERS Safety Report 8607205 (Version 3)
Quarter: 2014Q1

REPORT INFORMATION
  Report Type: Spontaneous
  Country: US (occurrence: US)
  Receive Date: 20120611
  Receipt Date: 20140131
  Transmission Date: 20141002
  Serious: Yes (Disabling)
  Sender: FDA-Public Use
  Company Number: US-ASTRAZENECA-2012SE35642

PATIENT
  Age: 47 Year
  Sex: Female

DRUGS (26)
  1. NEXIUM [Suspect]
     Indication: GASTROOESOPHAGEAL REFLUX DISEASE
     Dosage: ONCE DAILY
     Route: 048
     Dates: start: 2000
  2. NEXIUM [Suspect]
     Indication: GASTROOESOPHAGEAL REFLUX DISEASE
     Route: 048
     Dates: start: 20100825
  3. PRILOSEC [Suspect]
     Route: 048
  4. LISINOPRIL [Concomitant]
  5. ALBUTEROL [Concomitant]
  6. SYMBICORT [Concomitant]
  7. GEMFIBROZIL [Concomitant]
  8. ZOCOR [Concomitant]
  9. METFORMIN [Concomitant]
  10. FLONASE [Concomitant]
  11. LASIX [Concomitant]
  12. NEURONTIN [Concomitant]
  13. ASPIRIN [Concomitant]
  14. PREVACID [Concomitant]
  15. TUMS [Concomitant]
     Dosage: 2 TO 6 A DAY
  16. FUROSEMIDE [Concomitant]
     Dates: start: 20100825
  17. HYDROCHLOROTHIAZIDE [Concomitant]
     Dates: start: 20090823
  18. MELOXICAM [Concomitant]
     Dates: start: 20111230
  19. NAPROXEN [Concomitant]
     Dates: start: 20070124
  20. SIMVASTATIN [Concomitant]
     Dates: start: 20111116
  21. ABILIFY [Concomitant]
     Dates: start: 20110604
  22. FEXOFENADINE HCL [Concomitant]
     Dates: start: 20081223
  23. IBUPROFEN [Concomitant]
     Dates: start: 20080509
  24. KLOR-CON [Concomitant]
     Dates: start: 20100825
  25. SEROQUEL [Concomitant]
     Dates: start: 20081113
  26. SERTRALINE HCL [Concomitant]
     Dates: start: 20081113

REACTIONS (13)
  - Fall [Unknown]
  - Osteoporosis [Unknown]
  - Ankle fracture [Unknown]
  - Hand fracture [Unknown]
  - Arthritis [Unknown]
  - Atrophy [Unknown]
  - Bone pain [Unknown]
  - Chronic obstructive pulmonary disease [Unknown]
  - Cubital tunnel syndrome [Unknown]
  - Diabetes mellitus [Unknown]
  - Lower limb fracture [Unknown]
  - Upper limb fracture [Unknown]
  - Depression [Unknown]
